FAERS Safety Report 4472669-7 (Version None)
Quarter: 2004Q4

REPORT INFORMATION
  Report Type: 
  Country: None (occurrence: None)
  Receive Date: 20041012
  Receipt Date: 20041012
  Transmission Date: 20050328
  Serious: Yes (Hospitalization)
  Sender: FDA-Public Use
  Company Number: None

PATIENT
  Age: 61 Year
  Sex: Male

DRUGS (2)
  1. ADRIAMYCIN 10MG/M2 [Suspect]
     Indication: PROSTATE CANCER
     Dosage: QWK X 3 WKS
  2. TAXOTERE [Suspect]
     Dosage: QWK X 3 WKS

REACTIONS (3)
  - DISEASE PROGRESSION [None]
  - PERICARDIAL EFFUSION [None]
  - PLEURAL EFFUSION [None]
